FAERS Safety Report 22111210 (Version 1)
Quarter: 2023Q1

REPORT INFORMATION
  Report Type: Spontaneous
  Country: US (occurrence: US)
  Receive Date: 20230317
  Receipt Date: 20230317
  Transmission Date: 20230418
  Serious: No
  Sender: FDA-Public Use
  Company Number: US-PFIZER INC-PV202300051517

PATIENT
  Age: 50 Year
  Sex: Female

DRUGS (2)
  1. NURTEC ODT [Suspect]
     Active Substance: RIMEGEPANT SULFATE
     Indication: Migraine
     Dosage: PLACE 1 TABLET ON OR UNDER THE TONGUE
     Route: 048
     Dates: start: 20211008
  2. PROTRIPTYLINE [Concomitant]
     Active Substance: PROTRIPTYLINE
     Dosage: UNK

REACTIONS (1)
  - Drug ineffective [Unknown]
